FAERS Safety Report 7513752-9 (Version None)
Quarter: 2011Q2

REPORT INFORMATION
  Report Type: 
  Country: None (occurrence: None)
  Receive Date: 20110531
  Receipt Date: 20110527
  Transmission Date: 20111010
  Serious: Yes (Other)
  Sender: FDA-Public Use
  Company Number: GB-AMGEN-GBRSP2011027442

PATIENT
  Age: 74 Year
  Sex: Female
  Weight: 45 kg

DRUGS (4)
  1. CALCICHEW D3 [Concomitant]
     Indication: OSTEOPOROSIS
     Dosage: 2 DF, QD
     Route: 048
  2. SERETIDE [Concomitant]
     Indication: ASTHMA
     Dosage: 2 DF, BID
     Route: 055
  3. ALBUTEROL [Concomitant]
     Indication: ASTHMA
     Dosage: 2 DF, UNK
     Route: 055
  4. PROLIA [Suspect]
     Indication: OSTEOPOROSIS
     Dosage: 60 MG, Q6MO
     Route: 058
     Dates: start: 20101005

REACTIONS (1)
  - RAYNAUD'S PHENOMENON [None]
